FAERS Safety Report 5101158-1 (Version None)
Quarter: 2006Q3

REPORT INFORMATION
  Report Type: 
  Country: None (occurrence: None)
  Receive Date: 20060911
  Receipt Date: 20060821
  Transmission Date: 20061208
  Serious: Yes (Hospitalization)
  Sender: FDA-Public Use
  Company Number: US-AMGEN-US190540

PATIENT
  Sex: Male

DRUGS (11)
  1. EPOGEN [Suspect]
     Indication: DIALYSIS
     Route: 042
  2. CELLCEPT [Concomitant]
     Dates: end: 20060818
  3. BACTRIM [Concomitant]
     Dates: end: 20060818
  4. ATENOLOL [Concomitant]
     Dates: end: 20060809
  5. LASIX [Concomitant]
  6. LOSARTAN POSTASSIUM [Concomitant]
  7. BENADRYL [Concomitant]
  8. ASPIRIN [Concomitant]
  9. NIFEDIPINE [Concomitant]
  10. METOPROLOL TARTRATE [Concomitant]
  11. LISINOPRIL [Concomitant]

REACTIONS (2)
  - ANAEMIA [None]
  - EOSINOPHILIA [None]
